FAERS Safety Report 5855419-9 (Version None)
Quarter: 2008Q3

REPORT INFORMATION
  Report Type: 
  Country: None (occurrence: None)
  Receive Date: 20080822
  Receipt Date: 20060228
  Transmission Date: 20090109
  Serious: No
  Sender: FDA-Public Use
  Company Number: US-ABBOTT-08P-163-0467823-00

PATIENT
  Sex: Male

DRUGS (5)
  1. LEVOTHYROXINE SODIUM [Suspect]
     Indication: DRUG USE FOR UNKNOWN INDICATION
  2. LEVOTHYROXINE SODIUM [Suspect]
     Dosage: 100 MCG
  3. LEVOTHYROXINE SODIUM [Suspect]
     Dosage: 88 MCG
  4. LEVOTHYROXINE SODIUM [Suspect]
     Dosage: 100 MCG
  5. LEVOTHYROXINE SODIUM [Suspect]
     Dosage: 88 MCG

REACTIONS (3)
  - BLOOD THYROID STIMULATING HORMONE INCREASED [None]
  - CHEST PAIN [None]
  - PALPITATIONS [None]
